FAERS Safety Report 10904776 (Version 6)
Quarter: 2016Q2

REPORT INFORMATION
  Report Type: Report from Study
  Country: US (occurrence: US)
  Receive Date: 20150311
  Receipt Date: 20160519
  Transmission Date: 20160815
  Serious: Yes (Hospitalization, Other)
  Sender: FDA-Public Use
  Company Number: US-SA-2015SA014200

PATIENT
  Age: 58 Year
  Sex: Female

DRUGS (5)
  1. AUBAGIO [Suspect]
     Active Substance: TERIFLUNOMIDE
     Indication: MULTIPLE SCLEROSIS
     Route: 048
     Dates: start: 20150128, end: 201603
  2. PROVIGIL [Concomitant]
     Active Substance: MODAFINIL
     Route: 048
  3. AUBAGIO [Suspect]
     Active Substance: TERIFLUNOMIDE
     Indication: MULTIPLE SCLEROSIS
     Route: 048
     Dates: start: 201603
  4. COPAXONE [Concomitant]
     Active Substance: GLATIRAMER ACETATE
     Indication: MULTIPLE SCLEROSIS
     Dates: start: 20080301, end: 20140301
  5. AUBAGIO [Suspect]
     Active Substance: TERIFLUNOMIDE
     Indication: MULTIPLE SCLEROSIS
     Route: 048
     Dates: start: 20140301

REACTIONS (33)
  - Altered visual depth perception [Unknown]
  - Dysstasia [Unknown]
  - Paraesthesia [Unknown]
  - Pain [Recovering/Resolving]
  - Pain [Recovered/Resolved]
  - Cognitive disorder [Unknown]
  - Dysarthria [Unknown]
  - Frustration tolerance decreased [Unknown]
  - Micturition urgency [Unknown]
  - Unevaluable event [Unknown]
  - Visual acuity reduced [Not Recovered/Not Resolved]
  - Gallbladder disorder [Unknown]
  - Anxiety [Unknown]
  - Visual impairment [Unknown]
  - Muscle spasticity [Recovering/Resolving]
  - Pain [Unknown]
  - Skin discolouration [Unknown]
  - Temperature intolerance [Unknown]
  - Drug dose omission [Unknown]
  - Fatigue [Unknown]
  - Gait disturbance [Unknown]
  - Back pain [Unknown]
  - Musculoskeletal stiffness [Unknown]
  - Arthralgia [Unknown]
  - Diarrhoea [Recovered/Resolved]
  - Spinal osteoarthritis [Unknown]
  - Stress [Unknown]
  - Impaired work ability [Unknown]
  - Pyrexia [Recovered/Resolved]
  - Lumbosacral radiculopathy [Recovering/Resolving]
  - Incontinence [Unknown]
  - Gastroenteritis viral [Recovered/Resolved]
  - Nausea [Recovered/Resolved]

NARRATIVE: CASE EVENT DATE: 2014
